FAERS Safety Report 9812787 (Version 1)
Quarter: 2014Q1

REPORT INFORMATION
  Report Type: Spontaneous
  Country: US (occurrence: None)
  Receive Date: 20140108
  Receipt Date: 20140108
  Transmission Date: 20141002
  Serious: No
  Sender: FDA-Public Use
  Company Number: CC13-1196

PATIENT
  Age: 40 Year
  Sex: Female
  Weight: 72.58 kg

DRUGS (1)
  1. ERYTHROMYCIN AND BENZOYL PEROXIDE [Suspect]
     Indication: ACNE
     Dates: start: 20131102, end: 20131106

REACTIONS (4)
  - Pruritus [None]
  - Skin irritation [None]
  - Acne [None]
  - Confusional state [None]
